FAERS Safety Report 25952573 (Version 1)
Quarter: 2025Q4

REPORT INFORMATION
  Report Type: Spontaneous
  Country: GB (occurrence: GB)
  Receive Date: 20251023
  Receipt Date: 20251023
  Transmission Date: 20260117
  Serious: Yes (Other)
  Sender: PFIZER
  Company Number: GB-009507513-2341030

PATIENT
  Age: 72 Year
  Sex: Female

DRUGS (4)
  1. BEVACIZUMAB [Suspect]
     Active Substance: BEVACIZUMAB
     Indication: Ovarian cancer stage III
     Dosage: UNK
  2. OLAPARIB [Suspect]
     Active Substance: OLAPARIB
     Indication: Ovarian cancer stage III
     Dosage: UNK
     Route: 048
     Dates: start: 202411, end: 20250514
  3. OLAPARIB [Suspect]
     Active Substance: OLAPARIB
     Dosage: 250 MG, BID (DOSE REDUCED)
     Route: 048
     Dates: start: 20250626, end: 20250806
  4. OLAPARIB [Suspect]
     Active Substance: OLAPARIB
     Dosage: 200 MILLIGRAM, BID (DOSE REDUCED)
     Route: 048
     Dates: start: 20250826, end: 20251009

REACTIONS (2)
  - Anaemia [Unknown]
  - Infection [Unknown]

NARRATIVE: CASE EVENT DATE: 20250101
